FAERS Safety Report 14192990 (Version 3)
Quarter: 2018Q1

REPORT INFORMATION
  Report Type: Report from Study
  Country: US (occurrence: US)
  Receive Date: 20171115
  Receipt Date: 20180206
  Transmission Date: 20180508
  Serious: Yes (Hospitalization, Other)
  Sender: FDA-Public Use
  Company Number: US-ALEXION PHARMACEUTICALS INC.-A201712549

PATIENT
  Sex: Female

DRUGS (1)
  1. SOLIRIS [Suspect]
     Active Substance: ECULIZUMAB
     Indication: PAROXYSMAL NOCTURNAL HAEMOGLOBINURIA
     Dosage: UNK
     Route: 065

REACTIONS (15)
  - Neutropenia [Unknown]
  - Gingival bleeding [Unknown]
  - Blood urine present [Unknown]
  - Epistaxis [Unknown]
  - Haemoglobin decreased [Unknown]
  - Bacterial vaginosis [Unknown]
  - Pain [Unknown]
  - Fatigue [Unknown]
  - Haemoglobinuria [Unknown]
  - Gingivitis [Unknown]
  - Platelet count decreased [Unknown]
  - Chromaturia [Unknown]
  - Exposure during pregnancy [Unknown]
  - Headache [Unknown]
  - Abscess limb [Unknown]
